FAERS Safety Report 17751448 (Version 11)
Quarter: 2024Q4

REPORT INFORMATION
  Report Type: Spontaneous
  Country: US (occurrence: US)
  Receive Date: 20200506
  Receipt Date: 20241029
  Transmission Date: 20250115
  Serious: Yes (Other)
  Sender: SANOFI AVENTIS
  Company Number: US-SA-2020SA117062

PATIENT
  Age: 61 Year
  Sex: Female

DRUGS (5)
  1. DUPIXENT [Suspect]
     Active Substance: DUPILUMAB
     Indication: Nasal polyps
     Dosage: 300 MG, QOW
     Route: 058
     Dates: start: 202003
  2. DUPIXENT [Suspect]
     Active Substance: DUPILUMAB
     Indication: Asthma
     Dosage: 300 MG, QOW
     Route: 058
     Dates: start: 202404
  3. ESTRADIOL [Concomitant]
     Active Substance: ESTRADIOL
     Dosage: STOPPED
  4. RANITIDINE [Concomitant]
     Active Substance: RANITIDINE
     Dosage: STOPPED
     Route: 065
  5. LANSOPRAZOLE [Concomitant]
     Active Substance: LANSOPRAZOLE
     Route: 065

REACTIONS (9)
  - Pelvic abscess [Unknown]
  - Staphylococcal infection [Unknown]
  - Acne [Unknown]
  - Bronchitis [Unknown]
  - Liver disorder [Unknown]
  - Hepatic enzyme increased [Unknown]
  - Sinusitis [Unknown]
  - Asthma [Unknown]
  - Product storage error [Unknown]

NARRATIVE: CASE EVENT DATE: 20200101
